FAERS Safety Report 19702269 (Version 1)
Quarter: 2021Q3

REPORT INFORMATION
  Report Type: Spontaneous
  Country: CA (occurrence: CA)
  Receive Date: 20210814
  Receipt Date: 20210814
  Transmission Date: 20211014
  Serious: Yes (Life-Threatening, Hospitalization, Other)
  Sender: FDA-Public Use
  Company Number: CA-TEVA-2021-CA-1940894

PATIENT
  Age: 79 Year
  Sex: Female

DRUGS (3)
  1. INDAPAMIDE. [Suspect]
     Active Substance: INDAPAMIDE
  2. ENALAPRIL [Suspect]
     Active Substance: ENALAPRIL
     Route: 065
  3. MINT?BISOPROLOL [Suspect]
     Active Substance: BISOPROLOL FUMARATE

REACTIONS (1)
  - Hypovolaemic shock [Recovered/Resolved]
